FAERS Safety Report 8560558-8 (Version None)
Quarter: 2012Q3

REPORT INFORMATION
  Report Type: 
  Country: None (occurrence: None)
  Receive Date: 20120802
  Receipt Date: 20100616
  Transmission Date: 20120928
  Serious: Yes (Hospitalization)
  Sender: FDA-Public Use
  Company Number: US-BAYER-200936814NA

PATIENT
  Age: 44 Year
  Sex: Female
  Weight: 60.9 kg

DRUGS (13)
  1. YASMIN [Suspect]
     Indication: UTERINE LEIOMYOMA
  2. IBUPROFEN [Concomitant]
     Dosage: UNK
     Dates: start: 20020101
  3. MORPHINE SULFATE [Concomitant]
     Dosage: UNK
     Dates: start: 20070521
  4. ZOFRAN [Concomitant]
  5. YASMIN [Suspect]
     Indication: MENSTRUATION IRREGULAR
     Dosage: 1 DF, QD
     Route: 048
     Dates: start: 20021101, end: 20021213
  6. ALLEGRA [Concomitant]
  7. ACETAMINOPHEN [Concomitant]
     Dosage: UNK
     Dates: start: 20020101
  8. ASPIRIN [Concomitant]
     Dosage: 81 MG, UNK
     Dates: start: 20030101
  9. POTASSIUM CHLORIDE [Concomitant]
     Dosage: 20 MEQ, UNK
     Dates: start: 20090801
  10. POTASSIUM 99 [Concomitant]
     Dosage: UNK
     Dates: start: 20080101, end: 20100101
  11. POTASSIUM CHLORIDE [Concomitant]
     Dosage: 20 MEQ, UNK
     Dates: start: 20080101
  12. HYZAAR [Concomitant]
     Dosage: 50-12.5
     Dates: start: 20030101
  13. CLONIDINE [Concomitant]
     Dosage: UNK
     Dates: start: 20070521

REACTIONS (13)
  - ABDOMINAL PAIN UPPER [None]
  - CHOLECYSTITIS ACUTE [None]
  - HYPERTENSION [None]
  - ANAEMIA [None]
  - VIITH NERVE PARALYSIS [None]
  - DYSPNOEA [None]
  - NAUSEA [None]
  - CHEST PAIN [None]
  - HEADACHE [None]
  - DIZZINESS [None]
  - EYELID PTOSIS [None]
  - CEREBROVASCULAR ACCIDENT [None]
  - CHOLELITHIASIS [None]
